FAERS Safety Report 16965042 (Version 1)
Quarter: 2019Q4

REPORT INFORMATION
  Report Type: Spontaneous
  Country: US (occurrence: US)
  Receive Date: 20191028
  Receipt Date: 20191028
  Transmission Date: 20200122
  Serious: Yes (Hospitalization)
  Sender: FDA-Public Use
  Company Number: US-SCIEGEN PHARMACEUTICALS INC-2019SCILIT00289

PATIENT
  Sex: Female

DRUGS (2)
  1. METFORMIN HYDROCHLORIDETABLETS [Suspect]
     Active Substance: METFORMIN HYDROCHLORIDE
  2. LEVOTHYROXINE. [Suspect]
     Active Substance: LEVOTHYROXINE

REACTIONS (5)
  - Lactic acidosis [Recovered/Resolved]
  - Anuria [Unknown]
  - Mental status changes [Unknown]
  - Product use in unapproved indication [None]
  - Toxicity to various agents [Recovered/Resolved]
